FAERS Safety Report 16095945 (Version 1)
Quarter: 2019Q1

REPORT INFORMATION
  Report Type: Spontaneous
  Country: US (occurrence: US)
  Receive Date: 20190320
  Receipt Date: 20190320
  Transmission Date: 20190418
  Serious: No
  Sender: FDA-Public Use
  Company Number: US-SA-2019SA072802

PATIENT
  Age: 55 Year
  Sex: Female

DRUGS (19)
  1. GABAPENTIN. [Concomitant]
     Active Substance: GABAPENTIN
  2. MONTELUKAST SODIUM. [Concomitant]
     Active Substance: MONTELUKAST SODIUM
  3. NIFEDIPINE. [Concomitant]
     Active Substance: NIFEDIPINE
  4. SERTRALINE [Concomitant]
     Active Substance: SERTRALINE HYDROCHLORIDE
  5. SPIRIVA [Concomitant]
     Active Substance: TIOTROPIUM BROMIDE MONOHYDRATE
  6. ACIDOPHILUS [Concomitant]
     Active Substance: LACTOBACILLUS ACIDOPHILUS
  7. MAGNESIUM [Concomitant]
     Active Substance: MAGNESIUM
  8. SYMBICORT [Concomitant]
     Active Substance: BUDESONIDE\FORMOTEROL FUMARATE DIHYDRATE
  9. BUDESONIDE. [Concomitant]
     Active Substance: BUDESONIDE
  10. CHLORPHEN [CHLORAMPHENICOL] [Concomitant]
  11. EPINEPHRINE. [Concomitant]
     Active Substance: EPINEPHRINE
  12. DUPIXENT [Suspect]
     Active Substance: DUPILUMAB
     Indication: ASTHMA
     Dosage: 600 MG, QOW
     Route: 058
  13. FLUTICASONE. [Concomitant]
     Active Substance: FLUTICASONE
  14. HYDROXYZINE [Concomitant]
     Active Substance: HYDROXYZINE HYDROCHLORIDE
  15. CLONAZEPAM. [Concomitant]
     Active Substance: CLONAZEPAM
  16. MILK THISTLE [SILYBUM MARIANUM] [Concomitant]
  17. CELECOXIB. [Concomitant]
     Active Substance: CELECOXIB
  18. LEVO-T [Concomitant]
     Active Substance: LEVOTHYROXINE SODIUM
  19. OMEGA-3 [DOCOSAHEXAENOIC ACID;EICOSAPENTAENOIC ACID] [Concomitant]
     Active Substance: DOCONEXENT\ICOSAPENT

REACTIONS (2)
  - Herpes zoster [Unknown]
  - Product use issue [Unknown]

NARRATIVE: CASE EVENT DATE: 20190312
